FAERS Safety Report 8468752-1 (Version None)
Quarter: 2012Q2

REPORT INFORMATION
  Report Type: 
  Country: None (occurrence: None)
  Receive Date: 20120626
  Receipt Date: 20120621
  Transmission Date: 20120825
  Serious: Yes (Other)
  Sender: FDA-Public Use
  Company Number: US-JNJFOC-20120611144

PATIENT

DRUGS (1)
  1. STELARA [Suspect]
     Indication: CROHN'S DISEASE
     Route: 058
     Dates: start: 20120613

REACTIONS (3)
  - ANTIBODY TEST POSITIVE [None]
  - DIARRHOEA HAEMORRHAGIC [None]
  - FATIGUE [None]
